FAERS Safety Report 6747716-X (Version None)
Quarter: 2010Q2

REPORT INFORMATION
  Report Type: 
  Country: None (occurrence: None)
  Receive Date: 20100528
  Receipt Date: 20100517
  Transmission Date: 20101027
  Serious: Yes (Other)
  Sender: FDA-Public Use
  Company Number: ES-ELI_LILLY_AND_COMPANY-ES201005007303

PATIENT
  Sex: Female
  Weight: 69 kg

DRUGS (9)
  1. BYETTA [Suspect]
     Indication: DIABETES MELLITUS
     Dosage: 5 UG, 2/D
     Route: 058
     Dates: end: 20090101
  2. BYETTA [Suspect]
     Dosage: 10 UG, 2/D
     Route: 058
     Dates: start: 20090101, end: 20100501
  3. ANACERVIX [Concomitant]
     Indication: VENOUS INSUFFICIENCY
     Dosage: UNK, 2/D
     Route: 048
  4. FLUVASTATIN /01224502/ [Concomitant]
     Indication: VENOUS INSUFFICIENCY
     Dosage: UNK, DAILY (1/D)
     Route: 048
  5. OMEPRAZOLE [Concomitant]
     Dosage: UNK, DAILY (1/D)
     Route: 048
  6. AMARYL [Concomitant]
     Indication: DIABETES MELLITUS
     Dosage: 2 MG, DAILY (1/D)
     Route: 048
  7. AVANDIA [Concomitant]
     Indication: DIABETES MELLITUS
     Dosage: UNK, DAILY (1/D)
     Route: 048
  8. ZARATOR /01326101/ [Concomitant]
     Indication: BLOOD CHOLESTEROL
     Dosage: UNK, DAILY (1/D)
     Route: 048
  9. TEVETEN [Concomitant]
     Dosage: UNK, DAILY (1/D)
     Route: 048

REACTIONS (3)
  - HYPOGLYCAEMIC UNCONSCIOUSNESS [None]
  - NAUSEA [None]
  - VOMITING [None]
